FAERS Safety Report 23731193 (Version 1)
Quarter: 2024Q2

REPORT INFORMATION
  Report Type: Spontaneous
  Country: CA (occurrence: CA)
  Receive Date: 20240411
  Receipt Date: 20240411
  Transmission Date: 20240715
  Serious: Yes (Death, Other)
  Sender: FDA-Public Use
  Company Number: CA-CELLTRION INC.-2024CA008563

PATIENT

DRUGS (2)
  1. INFLECTRA [Suspect]
     Active Substance: INFLIXIMAB-DYYB
     Indication: Colitis ulcerative
     Dosage: 300 MG, INDUCTION WEEKS 0 (RECEIVED IN HOSPITAL), 2, 6 MAINTENANCE Q 8 WEEKS
     Route: 042
     Dates: start: 20231023
  2. INFLECTRA [Suspect]
     Active Substance: INFLIXIMAB-DYYB
     Dosage: 300 MG, INDUCTION WEEKS 0 (RECEIVED IN HOSPITAL), 2, 6 MAINTENANCE Q 8 WEEKS
     Route: 042
     Dates: start: 20231212

REACTIONS (1)
  - Death [Fatal]
